FAERS Safety Report 10098243 (Version 1)
Quarter: 2014Q2

REPORT INFORMATION
  Report Type: Spontaneous
  Country: US (occurrence: US)
  Receive Date: 20140423
  Receipt Date: 20140423
  Transmission Date: 20141212
  Serious: Yes (Hospitalization)
  Sender: FDA-Public Use
  Company Number: US-BRISTOL-MYERS SQUIBB COMPANY-20384889

PATIENT
  Age: 45 Year
  Sex: Male
  Weight: 92.3 kg

DRUGS (1)
  1. YERVOY [Suspect]
     Indication: MALIGNANT MELANOMA
     Dosage: SECOND DOSE: 24JAN14
     Dates: start: 20140103

REACTIONS (1)
  - Endocrine disorder [Unknown]
